FAERS Safety Report 10574064 (Version 4)
Quarter: 2015Q1

REPORT INFORMATION
  Report Type: Spontaneous
  Country: JP (occurrence: JP)
  Receive Date: 20141110
  Receipt Date: 20150115
  Transmission Date: 20150720
  Serious: Yes (Other)
  Sender: FDA-Public Use
  Company Number: JP-BRISTOL-MYERS SQUIBB COMPANY-21568688

PATIENT
  Age: 32 Year
  Sex: Female
  Weight: 82.4 kg

DRUGS (5)
  1. NITRAZEPAM [Concomitant]
     Active Substance: NITRAZEPAM
  2. SENNOSIDE [Concomitant]
     Active Substance: SENNOSIDES
  3. RAMELTEON [Concomitant]
     Active Substance: RAMELTEON
  4. ABILIFY [Suspect]
     Active Substance: ARIPIPRAZOLE
     Indication: SCHIZOPHRENIA
     Dosage: DOSE REDUCED TO 21MG/DAY ON APR14, 18MG ON MAY14
     Route: 048
     Dates: start: 20140316
  5. ABILIFY [Suspect]
     Active Substance: ARIPIPRAZOLE
     Indication: SCHIZOPHRENIA
     Dosage: 24 MG, QD
     Route: 048
     Dates: start: 20140317, end: 20140406

REACTIONS (4)
  - Anaemia [Unknown]
  - Obesity [Not Recovered/Not Resolved]
  - Blood pressure increased [Unknown]
  - Weight increased [Not Recovered/Not Resolved]

NARRATIVE: CASE EVENT DATE: 20140916
